FAERS Safety Report 20257663 (Version 1)
Quarter: 2021Q4

REPORT INFORMATION
  Report Type: Other
  Country: BA (occurrence: None)
  Receive Date: 20211230
  Receipt Date: 20211230
  Transmission Date: 20220303
  Serious: Yes (Death, Hospitalization, Other)
  Sender: FDA-Public Use
  Company Number: BA-ROCHE-2948005

PATIENT
  Sex: Female

DRUGS (1)
  1. ENTRECTINIB [Suspect]
     Active Substance: ENTRECTINIB
     Indication: Pancreatic carcinoma metastatic
     Route: 048
     Dates: start: 20211015, end: 20211029

REACTIONS (9)
  - Oxygen saturation decreased [Fatal]
  - Tumour lysis syndrome [Fatal]
  - Pneumonia [Fatal]
  - Productive cough [Unknown]
  - Anaemia [Unknown]
  - Bronchiectasis [Unknown]
  - Vomiting [Recovered/Resolved]
  - Fatigue [Recovered/Resolved]
  - Nausea [Recovered/Resolved]

NARRATIVE: CASE EVENT DATE: 20211015
